FAERS Safety Report 20132343 (Version 1)
Quarter: 2021Q4

REPORT INFORMATION
  Report Type: Spontaneous
  Country: CA (occurrence: CA)
  Receive Date: 20211130
  Receipt Date: 20211130
  Transmission Date: 20220303
  Serious: Yes (Other)
  Sender: FDA-Public Use
  Company Number: CA-SA-SAC20211125001201

PATIENT
  Sex: Male

DRUGS (7)
  1. LEFLUNOMIDE [Suspect]
     Active Substance: LEFLUNOMIDE
     Dosage: UNK
  2. CELECOXIB [Suspect]
     Active Substance: CELECOXIB
     Dosage: UNK
  3. COSENTYX [Suspect]
     Active Substance: SECUKINUMAB
     Dosage: UNK
  4. BISOPROLOL [Concomitant]
     Active Substance: BISOPROLOL
     Indication: Hypertension
     Dosage: UNK
  5. FOLIC ACID [Concomitant]
     Active Substance: FOLIC ACID
     Dosage: UNK
  6. HUMIRA [Concomitant]
     Active Substance: ADALIMUMAB
     Dosage: UNK
  7. PREGABALIN [Concomitant]
     Active Substance: PREGABALIN
     Dosage: UNK

REACTIONS (12)
  - Arthralgia [Unknown]
  - Back pain [Unknown]
  - Skin lesion [Unknown]
  - Neck pain [Unknown]
  - Type 2 diabetes mellitus [Unknown]
  - Musculoskeletal stiffness [Unknown]
  - Hepatic enzyme increased [Unknown]
  - Hypertension [Unknown]
  - Joint swelling [Unknown]
  - Nausea [Unknown]
  - Ulcer [Unknown]
  - Treatment failure [Unknown]
